FAERS Safety Report 8862930 (Version 4)
Quarter: 2012Q4

REPORT INFORMATION
  Report Type: 
  Country: IL (occurrence: IL)
  Receive Date: 20121026
  Receipt Date: 20121220
  Transmission Date: 20130627
  Serious: Yes (Other)
  Sender: FDA-Public Use
  Company Number: PHHY2012IL063603

PATIENT
  Age: 44 Year
  Sex: Female

DRUGS (6)
  1. GILENYA [Suspect]
     Indication: MULTIPLE SCLEROSIS
     Dosage: 0.5 mg, daily
     Route: 048
     Dates: start: 20120603
  2. GILENYA [Suspect]
     Dosage: 0.5 mg, daily
     Route: 048
     Dates: start: 20121014, end: 20121211
  3. METHOTRIMEPRAZINE [Concomitant]
     Dosage: 50 mg, UNK
     Route: 048
  4. CLONAZEPAM [Concomitant]
     Dosage: 2 mg, UNK
     Route: 048
  5. DULOXETINE [Concomitant]
     Dosage: 60 mg, UNK
     Route: 048
  6. BROTIZOLAM [Concomitant]
     Route: 048

REACTIONS (5)
  - Thrombocytopenia [Not Recovered/Not Resolved]
  - Contusion [Unknown]
  - Hyperhidrosis [Not Recovered/Not Resolved]
  - Coagulation time prolonged [Not Recovered/Not Resolved]
  - Ecchymosis [Unknown]
